FAERS Safety Report 17067810 (Version 1)
Quarter: 2019Q4

REPORT INFORMATION
  Report Type: Spontaneous
  Country: US (occurrence: US)
  Receive Date: 20191122
  Receipt Date: 20191122
  Transmission Date: 20200122
  Serious: Yes (Hospitalization)
  Sender: FDA-Public Use
  Company Number: US-NOVOPROD-697179

PATIENT
  Age: 54 Year
  Sex: Female

DRUGS (1)
  1. TRESIBA [Suspect]
     Active Substance: INSULIN DEGLUDEC
     Indication: TYPE 2 DIABETES MELLITUS
     Dosage: 35 UNITS TWICE DAILY
     Route: 058
     Dates: start: 2019

REACTIONS (3)
  - Infection [Unknown]
  - Blood glucose increased [Unknown]
  - Off label use [Unknown]
